FAERS Safety Report 8484650-1 (Version None)
Quarter: 2012Q3

REPORT INFORMATION
  Report Type: 
  Country: None (occurrence: None)
  Receive Date: 20120703
  Receipt Date: 20120319
  Transmission Date: 20120928
  Serious: Yes (Death, Other)
  Sender: FDA-Public Use
  Company Number: US-PFIZER INC-2012156951

PATIENT
  Age: 45 Year
  Sex: Male
  Weight: 83.9 kg

DRUGS (3)
  1. COCAINE [Suspect]
     Route: 065
  2. METHADONE [Suspect]
     Route: 065
  3. MORPHINE SULFATE [Suspect]
     Route: 065

REACTIONS (3)
  - GUN SHOT WOUND [None]
  - SUBSTANCE ABUSE [None]
  - VICTIM OF HOMICIDE [None]
